FAERS Safety Report 16625199 (Version 13)
Quarter: 2024Q2

REPORT INFORMATION
  Report Type: Spontaneous
  Country: US (occurrence: US)
  Receive Date: 20190724
  Receipt Date: 20240422
  Transmission Date: 20240716
  Serious: Yes (Other)
  Sender: FDA-Public Use
  Company Number: US-PFIZER INC-2019312367

PATIENT
  Age: 54 Year
  Sex: Female

DRUGS (6)
  1. TOVIAZ [Suspect]
     Active Substance: FESOTERODINE FUMARATE
     Indication: Menopausal symptoms
     Dosage: 8 MG, DAILY
     Route: 048
  2. TOVIAZ [Suspect]
     Active Substance: FESOTERODINE FUMARATE
     Indication: Vulvovaginal dryness
     Dosage: 1 DF, DAILY
     Route: 048
  3. TOVIAZ [Suspect]
     Active Substance: FESOTERODINE FUMARATE
     Indication: Hormone replacement therapy
     Dosage: UNK, 2X/DAY
     Route: 048
  4. TOVIAZ [Suspect]
     Active Substance: FESOTERODINE FUMARATE
     Dosage: TOVIAZ 8 MG TABLET EXTENDED RELEASE 24 HOUR 1 TABLET ORALLY BID (TWICE A DAY)
     Route: 048
  5. TOVIAZ [Suspect]
     Active Substance: FESOTERODINE FUMARATE
     Dosage: TOVIAZ 4 MG TABLET EXTENDED RELEASE 24 HOUR 1 TABLET ORALLY BID (TWICE A DAY)
     Route: 048
  6. DUAVEE [BAZEDOXIFENE;ESTROGENS CONJUGATED] [Concomitant]
     Indication: Menopausal symptoms
     Dosage: 1 DF, 1X/DAY
     Route: 048

REACTIONS (8)
  - Spinal disorder [Unknown]
  - Off label use [Unknown]
  - Wrong technique in product usage process [Unknown]
  - Back pain [Unknown]
  - Micturition urgency [Unknown]
  - Vaginal odour [Unknown]
  - Increased appetite [Unknown]
  - Weight decreased [Recovering/Resolving]
